FAERS Safety Report 17755271 (Version 1)
Quarter: 2020Q2

REPORT INFORMATION
  Report Type: Spontaneous
  Country: US (occurrence: US)
  Receive Date: 20200507
  Receipt Date: 20200507
  Transmission Date: 20200714
  Serious: Yes (Other)
  Sender: FDA-Public Use
  Company Number: US-PFIZER INC-2020182495

PATIENT
  Age: 17 Year
  Sex: Female

DRUGS (1)
  1. ZOLOFT [Suspect]
     Active Substance: SERTRALINE HYDROCHLORIDE
     Dosage: UNK

REACTIONS (9)
  - Loss of consciousness [Unknown]
  - Dizziness [Unknown]
  - Overdose [Unknown]
  - Head injury [Unknown]
  - Nausea [Unknown]
  - Gait disturbance [Unknown]
  - Feeling abnormal [Unknown]
  - Migraine [Unknown]
  - Vomiting [Unknown]

NARRATIVE: CASE EVENT DATE: 20200312
